FAERS Safety Report 5510259-5 (Version None)
Quarter: 2007Q4

REPORT INFORMATION
  Report Type: 
  Country: None (occurrence: None)
  Receive Date: 20071108
  Receipt Date: 20071031
  Transmission Date: 20080405
  Serious: Yes (Death)
  Sender: FDA-Public Use
  Company Number: US-WYE-H01037407

PATIENT

DRUGS (2)
  1. TIGECYCLINE [Suspect]
     Indication: ACINETOBACTER INFECTION
     Dosage: UNKNOWN DOSE AND FREQUENCY
     Route: 065
  2. TIGECYCLINE [Suspect]
     Indication: MULTIPLE-DRUG RESISTANCE

REACTIONS (1)
  - PATHOGEN RESISTANCE [None]
